FAERS Safety Report 6683126-1 (Version None)
Quarter: 2010Q2

REPORT INFORMATION
  Report Type: 
  Country: None (occurrence: None)
  Receive Date: 20100415
  Receipt Date: 20100305
  Transmission Date: 20101027
  Serious: Yes (Death)
  Sender: FDA-Public Use
  Company Number: FR-EISAI INC.-E7273-00132-SPO-FR

PATIENT
  Sex: Male

DRUGS (1)
  1. TARGRETIN [Suspect]
     Dosage: UNKNOWN
     Route: 048

REACTIONS (1)
  - INFARCTION [None]
